FAERS Safety Report 7484499-2 (Version None)
Quarter: 2011Q2

REPORT INFORMATION
  Report Type: 
  Country: None (occurrence: None)
  Receive Date: 20110517
  Receipt Date: 20110516
  Transmission Date: 20111010
  Serious: Yes (Other)
  Sender: FDA-Public Use
  Company Number: US-JNJFOC-20110207714

PATIENT
  Sex: Male
  Weight: 94 kg

DRUGS (1)
  1. DOXIL [Suspect]
     Indication: LEIOMYOSARCOMA METASTATIC
     Dosage: STOPPED AFTER 5 CYCLES
     Route: 042
     Dates: start: 20100301

REACTIONS (1)
  - EJECTION FRACTION DECREASED [None]
